FAERS Safety Report 21943820 (Version 1)
Quarter: 2023Q1

REPORT INFORMATION
  Report Type: Spontaneous
  Country: CA (occurrence: CA)
  Receive Date: 20230202
  Receipt Date: 20230202
  Transmission Date: 20230418
  Serious: Yes (Other)
  Sender: FDA-Public Use
  Company Number: CA-SA-2019SA202996

PATIENT

DRUGS (10)
  1. HYDROXYCHLOROQUINE [Suspect]
     Active Substance: HYDROXYCHLOROQUINE
     Indication: Maternal exposure during breast feeding
     Dosage: UNK
     Route: 063
  2. METHOTREXATE [Suspect]
     Active Substance: METHOTREXATE
     Indication: Maternal exposure during breast feeding
     Dosage: UNK
     Route: 063
  3. METHOTREXATE [Suspect]
     Active Substance: METHOTREXATE
     Indication: Rheumatoid arthritis
  4. LEFLUNOMIDE [Suspect]
     Active Substance: LEFLUNOMIDE
     Indication: Maternal exposure during breast feeding
     Dosage: 20 MG, QD
     Route: 063
  5. CERTOLIZUMAB PEGOL [Suspect]
     Active Substance: CERTOLIZUMAB PEGOL
     Indication: Rheumatoid arthritis
     Dosage: 400 MG, Q2W
     Route: 063
  6. CERTOLIZUMAB PEGOL [Suspect]
     Active Substance: CERTOLIZUMAB PEGOL
     Indication: Maternal exposure during breast feeding
  7. ENBREL [Suspect]
     Active Substance: ETANERCEPT
     Indication: Maternal exposure during breast feeding
     Dosage: UNK UNK, QW
     Route: 063
  8. ENBREL [Suspect]
     Active Substance: ETANERCEPT
     Indication: Rheumatoid arthritis
  9. PREDNISONE [Concomitant]
     Active Substance: PREDNISONE
     Indication: Maternal exposure during breast feeding
     Dosage: UNK
     Route: 063
  10. SULFASALAZINE [Concomitant]
     Active Substance: SULFASALAZINE
     Indication: Maternal exposure during breast feeding
     Dosage: UNK
     Route: 063

REACTIONS (2)
  - Exposure via breast milk [Unknown]
  - Maternal exposure during pregnancy [Unknown]
